FAERS Safety Report 9924471 (Version 1)
Quarter: 2014Q1

REPORT INFORMATION
  Report Type: Report from Study
  Country: CN (occurrence: CN)
  Receive Date: 20140226
  Receipt Date: 20140226
  Transmission Date: 20141002
  Serious: Yes (Other)
  Sender: FDA-Public Use
  Company Number: CN-ASTELLAS-2014US001988

PATIENT
  Sex: Male

DRUGS (1)
  1. ERLOTINIB TABLET [Suspect]
     Indication: NON-SMALL CELL LUNG CANCER
     Dosage: 150 MG, UID/QD
     Route: 048
     Dates: start: 20130510

REACTIONS (8)
  - Left atrial dilatation [Unknown]
  - Dilatation ventricular [Unknown]
  - Metastases to pleura [Unknown]
  - Metastases to lung [Unknown]
  - Lymphadenopathy mediastinal [Unknown]
  - Lung neoplasm [Unknown]
  - Pleural effusion [Unknown]
  - Metastases to lung [Unknown]
